FAERS Safety Report 8467337-0 (Version None)
Quarter: 2012Q2

REPORT INFORMATION
  Report Type: 
  Country: None (occurrence: None)
  Receive Date: 20120626
  Receipt Date: 20120619
  Transmission Date: 20120825
  Serious: Yes (Other)
  Sender: FDA-Public Use
  Company Number: IE-BAYER-2012-060239

PATIENT
  Age: 58 Year
  Sex: Female

DRUGS (1)
  1. GADAVIST [Suspect]
     Indication: MORTON'S NEUROMA
     Dosage: 5 ML, ONCE
     Route: 042
     Dates: start: 20120613, end: 20120613

REACTIONS (5)
  - CHEST PAIN [None]
  - EAR INFECTION [None]
  - VASCULITIS [None]
  - DYSPNOEA [None]
  - MALAISE [None]
